FAERS Safety Report 22139165 (Version 1)
Quarter: 2023Q1

REPORT INFORMATION
  Report Type: Spontaneous
  Country: IT (occurrence: IT)
  Receive Date: 20230327
  Receipt Date: 20230327
  Transmission Date: 20230418
  Serious: Yes (Other)
  Sender: FDA-Public Use
  Company Number: IT-CELLTRION INC.-2023IT006178

PATIENT

DRUGS (1)
  1. RITUXIMAB [Suspect]
     Active Substance: RITUXIMAB
     Indication: Acute disseminated encephalomyelitis
     Dosage: WEEKLY INFUSION FOR 4 WEEKS

REACTIONS (3)
  - Acute disseminated encephalomyelitis [Unknown]
  - Therapy partial responder [Unknown]
  - Off label use [Unknown]
